FAERS Safety Report 15996959 (Version 1)
Quarter: 2019Q1

REPORT INFORMATION
  Report Type: Spontaneous
  Country: CN (occurrence: CN)
  Receive Date: 20190222
  Receipt Date: 20190222
  Transmission Date: 20190418
  Serious: Yes (Other)
  Sender: FDA-Public Use
  Company Number: CN-JNJFOC-20190221434

PATIENT
  Age: 16 Year
  Sex: Male
  Weight: 52.8 kg

DRUGS (1)
  1. RISPERIDONE. [Suspect]
     Active Substance: RISPERIDONE
     Indication: PSYCHOTIC SYMPTOM
     Dosage: STARTED WITH 1ML PER DAY AND THEN THE DOSE WENT UP TO 5ML/DAY
     Route: 048
     Dates: start: 20180829, end: 20181005

REACTIONS (1)
  - Drug-induced liver injury [Unknown]

NARRATIVE: CASE EVENT DATE: 20180916
